FAERS Safety Report 10088259 (Version 1)
Quarter: 2014Q2

REPORT INFORMATION
  Report Type: Spontaneous
  Country: CN (occurrence: CN)
  Receive Date: 20140421
  Receipt Date: 20140421
  Transmission Date: 20141212
  Serious: Yes (Other)
  Sender: FDA-Public Use
  Company Number: CN-ACCORD-023132

PATIENT
  Age: 16 Year
  Sex: Male

DRUGS (1)
  1. QUETIAPINE [Suspect]
     Indication: BIPOLAR I DISORDER
     Dosage: QUICKLY DECREASED TO?50 MG/DAY.

REACTIONS (1)
  - Tic [Recovered/Resolved]
